FAERS Safety Report 7642500-7 (Version None)
Quarter: 2011Q3

REPORT INFORMATION
  Report Type: 
  Country: None (occurrence: None)
  Receive Date: 20110728
  Receipt Date: 20110726
  Transmission Date: 20111222
  Serious: Yes (Other)
  Sender: FDA-Public Use
  Company Number: US-PFIZER INC-2011098999

PATIENT
  Sex: Female

DRUGS (5)
  1. CHANTIX [Suspect]
     Indication: SMOKING CESSATION THERAPY
     Dosage: UNK
     Dates: start: 20070201, end: 20070201
  2. PRILOSEC [Concomitant]
     Indication: GASTROOESOPHAGEAL REFLUX DISEASE
     Dosage: UNK
     Dates: start: 20010101
  3. WELLBUTRIN SR [Concomitant]
     Indication: DEPRESSION
  4. DEPO-PROVERA [Concomitant]
     Indication: CONTRACEPTION
     Dosage: UNK
     Dates: start: 19930101
  5. WELLBUTRIN SR [Concomitant]
     Indication: ANXIETY
     Dosage: UNK
     Dates: start: 20000101

REACTIONS (6)
  - DEPRESSION [None]
  - COGNITIVE DISORDER [None]
  - SUICIDAL IDEATION [None]
  - AMNESIA [None]
  - AGITATION [None]
  - ANXIETY [None]
